FAERS Safety Report 8337922-5 (Version None)
Quarter: 2012Q2

REPORT INFORMATION
  Report Type: 
  Country: None (occurrence: None)
  Receive Date: 20120504
  Receipt Date: 20120425
  Transmission Date: 20120825
  Serious: Yes (Hospitalization)
  Sender: FDA-Public Use
  Company Number: JP-ASTRAZENECA-2012SE27616

PATIENT
  Sex: Female

DRUGS (4)
  1. ARIMIDEX [Suspect]
     Indication: BREAST CANCER
     Route: 048
  2. INSULIN [Suspect]
     Dosage: DOSE UNKNOWN
     Route: 058
  3. UNKNOWN DRUG [Suspect]
     Route: 048
  4. FAMOTIDINE [Concomitant]

REACTIONS (1)
  - LIVER DISORDER [None]
